FAERS Safety Report 10500080 (Version 1)
Quarter: 2014Q4

REPORT INFORMATION
  Report Type: Spontaneous
  Country: US (occurrence: US)
  Receive Date: 20141006
  Receipt Date: 20141006
  Transmission Date: 20150528
  Serious: No
  Sender: FDA-Public Use
  Company Number: US-AMGEN INC.-USASP2014055974

PATIENT
  Age: 76 Year
  Sex: Female

DRUGS (1)
  1. PROLIA [Suspect]
     Active Substance: DENOSUMAB
     Indication: OSTEOPOROSIS POSTMENOPAUSAL
     Dosage: UNK
     Route: 065
     Dates: start: 201307

REACTIONS (6)
  - Anxiety [Unknown]
  - Feeling abnormal [Unknown]
  - Bronchitis [Unknown]
  - Influenza like illness [Recovered/Resolved]
  - Nausea [Unknown]
  - Restlessness [Unknown]

NARRATIVE: CASE EVENT DATE: 20140718
